FAERS Safety Report 9653293 (Version 1)
Quarter: 2013Q4

REPORT INFORMATION
  Report Type: Spontaneous
  Country: US (occurrence: US)
  Receive Date: 20131029
  Receipt Date: 20131029
  Transmission Date: 20140711
  Serious: No
  Sender: FDA-Public Use
  Company Number: US-BAXTER-2013BAX040155

PATIENT
  Sex: 0

DRUGS (3)
  1. 3% SORBITOL UROLOGIC IRRIGATING SOLUTION [Suspect]
     Indication: WOUND TREATMENT
     Dates: start: 20131011, end: 20131011
  2. 3% SORBITOL UROLOGIC IRRIGATING SOLUTION [Suspect]
     Indication: OFF LABEL USE
  3. 3% SORBITOL UROLOGIC IRRIGATING SOLUTION [Suspect]
     Indication: LIGAMENT OPERATION

REACTIONS (2)
  - Wrong drug administered [Recovered/Resolved]
  - No adverse event [Recovered/Resolved]
